FAERS Safety Report 5873046-4 (Version None)
Quarter: 2008Q3

REPORT INFORMATION
  Report Type: 
  Country: None (occurrence: None)
  Receive Date: 20080903
  Receipt Date: 20080825
  Transmission Date: 20090109
  Serious: Yes (Hospitalization)
  Sender: FDA-Public Use
  Company Number: 2008BI004310

PATIENT
  Sex: Female

DRUGS (2)
  1. AVONEX [Suspect]
     Indication: DRUG USE FOR UNKNOWN INDICATION
     Dosage: 30 UG; QW; IM;
     Route: 030
     Dates: start: 20020308, end: 20070201
  2. AVONEX [Suspect]
     Indication: DRUG USE FOR UNKNOWN INDICATION
     Dosage: 30 UG; QW; IM;
     Route: 030
     Dates: end: 20080101

REACTIONS (15)
  - ANAEMIA [None]
  - ASTHENIA [None]
  - BALANCE DISORDER [None]
  - COLONIC POLYP [None]
  - DIVERTICULITIS [None]
  - DYSPNOEA [None]
  - FULL BLOOD COUNT DECREASED [None]
  - GASTRIC POLYPS [None]
  - GASTROINTESTINAL ARTERIOVENOUS MALFORMATION [None]
  - GASTROINTESTINAL HAEMORRHAGE [None]
  - MYALGIA [None]
  - OPTIC NEURITIS [None]
  - PAIN [None]
  - TREMOR [None]
  - VISION BLURRED [None]
